FAERS Safety Report 9742509 (Version 3)
Quarter: 2014Q1

REPORT INFORMATION
  Report Type: Not Available
  Country: GB (occurrence: GB)
  Receive Date: 20131210
  Receipt Date: 20140218
  Transmission Date: 20141002
  Serious: Yes (Other)
  Sender: FDA-Public Use
  Company Number: GB-IAC JAPAN XML-GBR-2013-0016525

PATIENT
  Age: 39 Year
  Sex: Male

DRUGS (4)
  1. BUPRENORPHINE [Suspect]
     Indication: PRODUCT USED FOR UNKNOWN INDICATION
  2. SUSTIVA [Interacting]
     Indication: HIV INFECTION
     Dosage: 600 MG, DAILY
     Route: 048
     Dates: end: 201311
  3. ATRIPLA [Suspect]
     Indication: HIV INFECTION
     Dosage: 1 DF, DAILY
     Route: 048
     Dates: end: 20131106
  4. DIAZEPAM [Concomitant]
     Route: 065

REACTIONS (3)
  - Drug interaction [Unknown]
  - Depression [Recovered/Resolved]
  - Drug level decreased [Unknown]
